FAERS Safety Report 5229499-8 (Version None)
Quarter: 2007Q1

REPORT INFORMATION
  Report Type: 
  Country: None (occurrence: None)
  Receive Date: 20070201
  Receipt Date: 20070111
  Transmission Date: 20070707
  Serious: Yes (Other)
  Sender: FDA-Public Use
  Company Number: 3835

PATIENT
  Age: 53 Year
  Sex: Female

DRUGS (1)
  1. AMNESTEEN (ISOTRETINOIN, 40 MG CAPSULES, MULAN) [Suspect]
     Indication: ACNE CYSTIC
     Dosage: 40 MG, BID, PO
     Route: 048
     Dates: start: 20060826, end: 20061021

REACTIONS (2)
  - DEPRESSION [None]
  - SUICIDAL IDEATION [None]
